FAERS Safety Report 7574439-X (Version None)
Quarter: 2011Q2

REPORT INFORMATION
  Report Type: 
  Country: None (occurrence: None)
  Receive Date: 20110627
  Receipt Date: 20110120
  Transmission Date: 20111010
  Serious: Yes (Other)
  Sender: FDA-Public Use
  Company Number: US-BAYER-201035087NA

PATIENT
  Age: 18 Year
  Sex: Female
  Weight: 68.027 kg

DRUGS (18)
  1. YASMIN [Suspect]
     Indication: CYST
  2. YASMIN [Suspect]
     Indication: DYSMENORRHOEA
  3. ACIPHEX [Concomitant]
     Dosage: UNK
     Dates: start: 20081110
  4. NAPROXEN [Concomitant]
     Dosage: UNK
     Dates: start: 20081101
  5. ALLEGRA [Concomitant]
  6. YAZ [Suspect]
     Indication: DYSMENORRHOEA
     Dates: start: 20070601, end: 20090101
  7. YAZ [Suspect]
     Indication: ENDOMETRIOSIS
  8. YAZ [Suspect]
     Indication: CONTRACEPTION
  9. YASMIN [Suspect]
     Indication: ENDOMETRIOSIS
  10. LEVONORGESTREL + ETHINYL ESTRADIOL [Concomitant]
     Indication: ENDOMETRIOSIS
  11. REGLAN [Concomitant]
  12. YASMIN [Suspect]
     Indication: CONTRACEPTION
     Dates: start: 20070601, end: 20090101
  13. PREDNISONE [Concomitant]
  14. ALLEGRA D 24 HOUR [Concomitant]
     Indication: MULTIPLE ALLERGIES
  15. DICLOFENAC SODIUM [Concomitant]
     Dosage: UNK
     Dates: start: 20081104
  16. YAZ [Suspect]
     Indication: CYST
  17. CITALOPRAM HYDROBROMIDE [Concomitant]
     Indication: DEPRESSION
     Dosage: UNK
     Dates: start: 20070101, end: 20100101
  18. HYDROCODONE BITARTRATE AND ACETAMINOPHEN [Concomitant]

REACTIONS (5)
  - CHOLECYSTITIS CHRONIC [None]
  - GALLBLADDER DISORDER [None]
  - PROCEDURAL PAIN [None]
  - ABDOMINAL PAIN UPPER [None]
  - DYSPEPSIA [None]
